FAERS Safety Report 10678563 (Version 1)
Quarter: 2014Q4

REPORT INFORMATION
  Report Type: Spontaneous
  Country: CH (occurrence: CH)
  Receive Date: 20141229
  Receipt Date: 20141229
  Transmission Date: 20150529
  Serious: Yes (Hospitalization, Other)
  Sender: FDA-Public Use
  Company Number: CH-TEVA-530001ISR

PATIENT
  Age: 0 Year
  Sex: Female
  Weight: 2.1 kg

DRUGS (2)
  1. UVAMIN [Suspect]
     Active Substance: NITROFURANTOIN
     Indication: CYSTITIS
     Dosage: 2 TIMES DURING 5 DAYS IN JAN-2014, DOSAGE UNKNOWN
     Route: 064
     Dates: start: 201401, end: 201401
  2. SANALEPSI N [Suspect]
     Active Substance: DOXYLAMINE SUCCINATE
     Dosage: 20 GTT DAILY; EXACT STOP DATE UNKNOWN
     Route: 064
     Dates: start: 2013, end: 201312

REACTIONS (6)
  - Foetal growth restriction [Recovered/Resolved]
  - Neonatal respiratory distress syndrome [Recovered/Resolved]
  - Neonatal hyponatraemia [Recovered/Resolved]
  - Exposure during pregnancy [Recovering/Resolving]
  - Hypotonia neonatal [Unknown]
  - Hypoglycaemia neonatal [Recovered/Resolved]

NARRATIVE: CASE EVENT DATE: 201312
